FAERS Safety Report 13495039 (Version 2)
Quarter: 2017Q2

REPORT INFORMATION
  Report Type: Spontaneous
  Country: US (occurrence: US)
  Receive Date: 20170428
  Receipt Date: 20170428
  Transmission Date: 20170830
  Serious: No
  Sender: FDA-Public Use
  Company Number: ALCN2015US003271

PATIENT
  Age: 89 Year
  Sex: Male

DRUGS (4)
  1. SIMBRINZA [Suspect]
     Active Substance: BRIMONIDINE TARTRATE\BRINZOLAMIDE
     Indication: INTRAOCULAR PRESSURE TEST
     Dosage: 1 GTT, BID
     Route: 047
     Dates: start: 20150510
  2. ALPHAGAN P [Concomitant]
     Active Substance: BRIMONIDINE TARTRATE
     Indication: INTRAOCULAR PRESSURE TEST
     Dosage: 1 GTT, BID
     Route: 047
     Dates: start: 20150505, end: 20150510
  3. TRAVATAN Z [Suspect]
     Active Substance: TRAVOPROST
     Indication: INTRAOCULAR PRESSURE TEST
     Dosage: 1 GTT, QHS
     Route: 047
  4. TRAVATAN Z [Suspect]
     Active Substance: TRAVOPROST

REACTIONS (4)
  - Eyelid margin crusting [Not Recovered/Not Resolved]
  - Eye irritation [Not Recovered/Not Resolved]
  - Lacrimation increased [Not Recovered/Not Resolved]
  - Intraocular pressure increased [Unknown]

NARRATIVE: CASE EVENT DATE: 20150510
